FAERS Safety Report 10343839 (Version 1)
Quarter: 2014Q3

REPORT INFORMATION
  Report Type: Spontaneous
  Country: US (occurrence: US)
  Receive Date: 20140726
  Receipt Date: 20140726
  Transmission Date: 20150326
  Serious: Yes (Other)
  Sender: FDA-Public Use
  Company Number: US-JNJFOC-20140709035

PATIENT
  Sex: Female
  Weight: 10.89 kg

DRUGS (2)
  1. CHILDRENS TYLENOL [Suspect]
     Active Substance: ACETAMINOPHEN
     Indication: PYREXIA
     Dosage: 1 TEASPOON, TWICE
     Route: 048
     Dates: start: 20140709, end: 20140710
  2. CHILDRENS TYLENOL [Suspect]
     Active Substance: ACETAMINOPHEN
     Route: 048

REACTIONS (7)
  - Product tampering [Unknown]
  - Wrong technique in drug usage process [Unknown]
  - Hypophagia [None]
  - Lip swelling [Recovered/Resolved]
  - Abnormal behaviour [Unknown]
  - Product quality issue [None]
  - Pyrexia [None]

NARRATIVE: CASE EVENT DATE: 20140710
